FAERS Safety Report 15766254 (Version 2)
Quarter: 2021Q2

REPORT INFORMATION
  Report Type: Spontaneous
  Country: CN (occurrence: CN)
  Receive Date: 20181227
  Receipt Date: 20210614
  Transmission Date: 20210716
  Serious: Yes (Hospitalization, Other)
  Sender: FDA-Public Use
  Company Number: CN-GLAXOSMITHKLINE-CN2018GSK231478

PATIENT
  Age: 68 Year
  Sex: Male

DRUGS (1)
  1. SERETIDE [Suspect]
     Active Substance: FLUTICASONE PROPIONATE\SALMETEROL XINAFOATE
     Indication: ASTHMA
     Dosage: 1 PUFF(S), QD
     Route: 055

REACTIONS (9)
  - Asthma [Recovered/Resolved]
  - Dysgeusia [Not Recovered/Not Resolved]
  - Feeding disorder [Unknown]
  - Mouth ulceration [Unknown]
  - Dysstasia [Unknown]
  - Blood glucose increased [Unknown]
  - Suicidal ideation [Not Recovered/Not Resolved]
  - Oral disorder [Unknown]
  - Dry mouth [Not Recovered/Not Resolved]

NARRATIVE: CASE EVENT DATE: 201808
